FAERS Safety Report 6987160-3 (Version None)
Quarter: 2010Q3

REPORT INFORMATION
  Report Type: 
  Country: None (occurrence: None)
  Receive Date: 20100916
  Receipt Date: 20100903
  Transmission Date: 20110219
  Serious: Yes (Other)
  Sender: FDA-Public Use
  Company Number: US-PFIZER INC-2010108822

PATIENT
  Sex: Male
  Weight: 65.76 kg

DRUGS (5)
  1. CHANTIX [Suspect]
     Indication: SMOKING CESSATION THERAPY
     Dosage: 0.5 MG, 1X/DAY
     Route: 048
     Dates: start: 20100801
  2. CHANTIX [Interacting]
     Dosage: 1 MG, 2X/DAY
     Dates: start: 20100801
  3. KLONOPIN [Interacting]
     Indication: ANXIETY
     Dosage: 1 MG, UNK
  4. KLONOPIN [Interacting]
     Indication: RELAXATION THERAPY
  5. SEROQUEL [Interacting]
     Indication: BIPOLAR I DISORDER
     Dosage: UNK

REACTIONS (4)
  - ANXIETY [None]
  - DRUG INTERACTION [None]
  - NERVOUSNESS [None]
  - TOBACCO WITHDRAWAL SYMPTOMS [None]
